FAERS Safety Report 19293110 (Version 1)
Quarter: 2021Q2

REPORT INFORMATION
  Report Type: Spontaneous
  Country: US (occurrence: US)
  Receive Date: 20210523
  Receipt Date: 20210523
  Transmission Date: 20210717
  Serious: No
  Sender: FDA-Public Use
  Company Number: None

PATIENT
  Age: 73 Year
  Sex: Male
  Weight: 98.1 kg

DRUGS (4)
  1. LISINOPRIL. [Concomitant]
     Active Substance: LISINOPRIL
  2. FAMOTIDINE. [Suspect]
     Active Substance: FAMOTIDINE
     Indication: GASTROOESOPHAGEAL REFLUX DISEASE
     Dosage: ?          QUANTITY:68 TABLET(S);?
     Route: 048
     Dates: start: 20210425, end: 20210514
  3. ASPIRIN. [Concomitant]
     Active Substance: ASPIRIN
  4. VITAMIN [Concomitant]
     Active Substance: VITAMINS

REACTIONS (6)
  - Diarrhoea [None]
  - Product substitution issue [None]
  - Abdominal discomfort [None]
  - Flatulence [None]
  - Product measured potency issue [None]
  - Nausea [None]

NARRATIVE: CASE EVENT DATE: 20210428
